FAERS Safety Report 4851629-8 (Version None)
Quarter: 2005Q4

REPORT INFORMATION
  Report Type: 
  Country: None (occurrence: None)
  Receive Date: 20051212
  Receipt Date: 20050830
  Transmission Date: 20060501
  Serious: Yes (Hospitalization)
  Sender: FDA-Public Use
  Company Number: US-MERCK-0508USA05003

PATIENT
  Age: 64 Year
  Sex: Female
  Weight: 95 kg

DRUGS (10)
  1. VIOXX [Suspect]
     Route: 048
     Dates: start: 19991001, end: 20040806
  2. ACCUPRIL [Concomitant]
     Route: 065
  3. LASIX [Concomitant]
     Route: 065
  4. POTASSIUM (UNSPECIFIED) [Concomitant]
     Route: 065
  5. [THERAPY UNSPECIFIED] [Concomitant]
     Route: 065
  6. ACIPHEX [Concomitant]
     Route: 065
  7. HYOSCYAMINE [Concomitant]
     Route: 065
  8. ATARAX [Concomitant]
     Route: 065
  9. ASPIRIN [Concomitant]
     Route: 065
  10. LOPRESSOR [Concomitant]
     Route: 065

REACTIONS (6)
  - BLOOD GLUCOSE INCREASED [None]
  - CARDIAC FAILURE CONGESTIVE [None]
  - CORONARY ARTERY DISEASE [None]
  - DIASTOLIC DYSFUNCTION [None]
  - NEUROPATHY [None]
  - TRANSIENT ISCHAEMIC ATTACK [None]
